FAERS Safety Report 8595461-0 (Version None)
Quarter: 2012Q3

REPORT INFORMATION
  Report Type: 
  Country: None (occurrence: None)
  Receive Date: 20120807
  Receipt Date: 20120807
  Transmission Date: 20120928
  Serious: Yes (Death, Hospitalization)
  Sender: FDA-Public Use
  Company Number: None

PATIENT
  Age: 64 Year
  Sex: Male
  Weight: 64 kg

DRUGS (7)
  1. MUCINEX [Concomitant]
  2. OXYCODONE HCL [Concomitant]
  3. ZOFRAN [Concomitant]
  4. CISPLATIN [Suspect]
     Dosage: 130 MG
     Dates: start: 20120529
  5. COUMADIN [Concomitant]
  6. KML001 [Concomitant]
  7. PROAIR HFA [Concomitant]

REACTIONS (8)
  - DISEASE PROGRESSION [None]
  - PERICARDIAL EFFUSION [None]
  - NON-SMALL CELL LUNG CANCER [None]
  - HYPOTENSION [None]
  - PNEUMOTHORAX [None]
  - PNEUMONIA [None]
  - CARDIAC TAMPONADE [None]
  - RESPIRATORY FAILURE [None]
